FAERS Safety Report 12124495 (Version 1)
Quarter: 2016Q1

REPORT INFORMATION
  Report Type: Spontaneous
  Country: CN (occurrence: CN)
  Receive Date: 20160229
  Receipt Date: 20160229
  Transmission Date: 20160526
  Serious: Yes (Hospitalization)
  Sender: FDA-Public Use
  Company Number: CN-MYLANLABS-2016M1008082

PATIENT

DRUGS (2)
  1. AMOXICILLIN W/SULBACTAM [Concomitant]
     Active Substance: AMOXICILLIN\SULBACTAM
     Indication: PYREXIA
     Dosage: ON THE THIRD DAY
     Route: 065
  2. LEVOFLOXACIN. [Suspect]
     Active Substance: LEVOFLOXACIN
     Indication: PYREXIA
     Dosage: 500 MG/DAY
     Route: 065

REACTIONS (2)
  - Crystal nephropathy [Recovering/Resolving]
  - Renal tubular necrosis [Recovering/Resolving]
